FAERS Safety Report 9631009 (Version 1)
Quarter: 2013Q4

REPORT INFORMATION
  Report Type: Spontaneous
  Country: GB (occurrence: None)
  Receive Date: 20131011
  Receipt Date: 20131011
  Transmission Date: 20140711
  Serious: Yes (Other)
  Sender: FDA-Public Use
  Company Number: AUR-APL-2013-08138

PATIENT
  Age: 30 Year
  Sex: Male

DRUGS (2)
  1. GABAPENTIN (GABAPENTIN) [Suspect]
     Indication: PRODUCT USED FOR UNKNOWN INDICATION
     Dosage: 4500 MG, 1 IN 1 D
     Route: 048
  2. BUPRENORPHINE [Concomitant]

REACTIONS (2)
  - Withdrawal syndrome [None]
  - Drug dependence [None]
